FAERS Safety Report 20709357 (Version 3)
Quarter: 2022Q3

REPORT INFORMATION
  Report Type: Spontaneous
  Country: FR (occurrence: FR)
  Receive Date: 20220414
  Receipt Date: 20220722
  Transmission Date: 20221026
  Serious: Yes (Hospitalization, Congenital Anomaly, Other)
  Sender: FDA-Public Use
  Company Number: FR-SUN PHARMACEUTICAL INDUSTRIES LTD-2022RR-333280

PATIENT
  Sex: Male
  Weight: 1.26 kg

DRUGS (6)
  1. ASPIRIN [Suspect]
     Active Substance: ASPIRIN
     Indication: Autoimmune hepatitis
     Dosage: 75 MILLIGRAM, DAILY
     Route: 064
  2. PERINDOPRIL [Suspect]
     Active Substance: PERINDOPRIL
     Indication: Blood pressure abnormal
     Dosage: 10 MILLIGRAM, DAILY
     Route: 064
  3. METHYLPREDNISOLONE [Suspect]
     Active Substance: METHYLPREDNISOLONE
     Indication: Autoimmune hepatitis
     Dosage: 4 MILLIGRAM, DAILY, IN THE MORNING
     Route: 064
  4. PROPRANOLOL [Suspect]
     Active Substance: PROPRANOLOL HYDROCHLORIDE
     Indication: Autoimmune hepatitis
     Dosage: 40 MILLIGRAM, BID
     Route: 064
  5. TACROLIMUS [Suspect]
     Active Substance: TACROLIMUS
     Indication: Autoimmune hepatitis
     Dosage: 1 MILLIGRAM, BID
     Route: 064
  6. AZATHIOPRINE [Suspect]
     Active Substance: AZATHIOPRINE
     Indication: Autoimmune hepatitis
     Dosage: 50 MILLIGRAM, BID
     Route: 064

REACTIONS (7)
  - Foetal exposure during pregnancy [Unknown]
  - Premature baby [Unknown]
  - Low birth weight baby [Unknown]
  - Kidney enlargement [Unknown]
  - Renal disorder [Unknown]
  - Nephropathy [Unknown]
  - Hypocalvaria [Unknown]
